FAERS Safety Report 9839572 (Version 3)
Quarter: 2014Q2

REPORT INFORMATION
  Report Type: Spontaneous
  Country: IT (occurrence: IT)
  Receive Date: 20140124
  Receipt Date: 20140421
  Transmission Date: 20141212
  Serious: Yes (Hospitalization)
  Sender: FDA-Public Use
  Company Number: IT-PFIZER INC-2014018251

PATIENT
  Age: 30 Year
  Sex: Male

DRUGS (3)
  1. ZITROMAX [Suspect]
     Dosage: 1500 MG, TOTAL DOSAGE
     Route: 048
     Dates: start: 20140101, end: 20140101
  2. BRUFEN [Suspect]
     Dosage: 3600 MG, TOTAL DOSAGE
     Route: 048
     Dates: start: 20140101, end: 20140101
  3. TACHIPIRINA [Suspect]
     Dosage: 5000 MG, TOTAL DOSAGE
     Route: 048
     Dates: start: 20140101, end: 20140101

REACTIONS (2)
  - Drug abuse [Recovered/Resolved]
  - Loss of consciousness [Recovered/Resolved]
